FAERS Safety Report 5509218-8 (Version None)
Quarter: 2007Q4

REPORT INFORMATION
  Report Type: 
  Country: None (occurrence: None)
  Receive Date: 20071107
  Receipt Date: 20071025
  Transmission Date: 20080405
  Serious: Yes (Hospitalization)
  Sender: FDA-Public Use
  Company Number: AU-ELI_LILLY_AND_COMPANY-AU200710006453

PATIENT
  Age: 60 Year
  Sex: Female

DRUGS (4)
  1. BYETTA [Suspect]
     Dosage: 5 UG, UNKNOWN
     Route: 058
     Dates: start: 20070101, end: 20071013
  2. MIXTARD /POL/ [Concomitant]
     Dates: end: 20071013
  3. DIAMICRON [Concomitant]
  4. OPIOIDS [Concomitant]
     Indication: BACK PAIN

REACTIONS (1)
  - ILEUS [None]
